FAERS Safety Report 8062124-X (Version None)
Quarter: 2012Q1

REPORT INFORMATION
  Report Type: 
  Country: None (occurrence: None)
  Receive Date: 20120120
  Receipt Date: 20120120
  Transmission Date: 20120608
  Serious: Yes (Life-Threatening, Hospitalization, Disabling)
  Sender: FDA-Public Use
  Company Number: None

PATIENT
  Age: 75 Year
  Sex: Male
  Weight: 106.8 kg

DRUGS (3)
  1. AMIKACIN [Suspect]
     Indication: DIABETIC FOOT
     Dosage: 500 MG BID IV
     Route: 042
     Dates: start: 20110822, end: 20110829
  2. AMIKACIN [Suspect]
     Indication: PSEUDOMONAS INFECTION
     Dosage: 500 MG BID IV
     Route: 042
     Dates: start: 20110822, end: 20110829
  3. FUROSEMIDE [Suspect]
     Indication: CARDIAC FAILURE CONGESTIVE
     Dosage: MG PO
     Route: 048
     Dates: start: 20101110, end: 20110829

REACTIONS (5)
  - CRANIAL NERVE DISORDER [None]
  - RENAL FAILURE ACUTE [None]
  - DEAFNESS [None]
  - BALANCE DISORDER [None]
  - DIZZINESS [None]
